FAERS Safety Report 4926969-4 (Version None)
Quarter: 2006Q1

REPORT INFORMATION
  Report Type: 
  Country: None (occurrence: None)
  Receive Date: 20060228
  Receipt Date: 20050926
  Transmission Date: 20060701
  Serious: Yes (Other)
  Sender: FDA-Public Use
  Company Number: US-GLAXOSMITHKLINE-A0575882A

PATIENT
  Age: 11 Year
  Sex: Female

DRUGS (5)
  1. LAMICTAL [Suspect]
     Indication: EPILEPSY
     Dosage: 125MG TWICE PER DAY
     Route: 048
     Dates: start: 20050601
  2. ZONEGRAN [Concomitant]
  3. VITAMIN B6 [Concomitant]
  4. ATIVAN [Concomitant]
  5. TYLENOL (CAPLET) [Concomitant]

REACTIONS (1)
  - CONVULSION [None]
